FAERS Safety Report 5626810-0 (Version None)
Quarter: 2008Q1

REPORT INFORMATION
  Report Type: 
  Country: None (occurrence: None)
  Receive Date: 20080212
  Receipt Date: 20080206
  Transmission Date: 20080703
  Serious: Yes (Other)
  Sender: FDA-Public Use
  Company Number: CHPA2008US02369

PATIENT
  Age: 88 Year
  Sex: Female

DRUGS (8)
  1. GAS-X EXTSTR CHEWABLE TABS CHERRY CREME (NCH)(SIMETHICONE) CHEWABLE TA [Suspect]
     Indication: FLATULENCE
     Dosage: 375 MG
     Dates: start: 20080204, end: 20080206
  2. METOPROLOL TARTRATE [Concomitant]
  3. FUROSEMIDE [Concomitant]
  4. ARIMIDEX [Concomitant]
  5. ASPIRIN [Concomitant]
  6. LYRICA [Concomitant]
  7. FOSINOPRIL SODIUM [Concomitant]
  8. POTASSIUM CHLORIDE [Concomitant]

REACTIONS (1)
  - VAGINAL HAEMORRHAGE [None]
